FAERS Safety Report 23085439 (Version 1)
Quarter: 2023Q4

REPORT INFORMATION
  Report Type: Spontaneous
  Country: DE (occurrence: DE)
  Receive Date: 20231019
  Receipt Date: 20231019
  Transmission Date: 20240109
  Serious: Yes (Other)
  Sender: FDA-Public Use
  Company Number: DE-DCGMA-23202008

PATIENT
  Sex: Female

DRUGS (6)
  1. PAXLOVID [Suspect]
     Active Substance: NIRMATRELVIR\RITONAVIR
     Indication: COVID-19 treatment
     Dosage: 150+100
     Route: 048
     Dates: start: 20230831, end: 20230906
  2. NOVALGIN (METAMIZOLE SODIUM) [Concomitant]
     Active Substance: METAMIZOLE SODIUM
     Indication: Pain
     Dosage: 1 ML
     Route: 048
     Dates: start: 20230830
  3. BISOPROLOL FUMARATE [Concomitant]
     Active Substance: BISOPROLOL FUMARATE
     Indication: Atrial fibrillation
     Dosage: 2.5 MG
     Route: 048
  4. MELPERONE [Concomitant]
     Active Substance: MELPERONE
     Indication: Sleep disorder
     Dosage: 5 MG/ML
     Route: 048
     Dates: start: 20230821
  5. MELPERONE [Concomitant]
     Active Substance: MELPERONE
     Indication: Restlessness
  6. VIMPAT [Concomitant]
     Active Substance: LACOSAMIDE
     Indication: Epilepsy
     Dosage: 40 ML
     Dates: start: 20230811

REACTIONS (2)
  - Hypokalaemia [Recovering/Resolving]
  - Off label use [Unknown]
